FAERS Safety Report 9949005 (Version 1)
Quarter: 2014Q1

REPORT INFORMATION
  Report Type: Spontaneous
  Country: US (occurrence: None)
  Receive Date: 20140122
  Receipt Date: 20140122
  Transmission Date: 20141002
  Serious: No
  Sender: FDA-Public Use
  Company Number: AEGR000160

PATIENT
  Age: 81 Year
  Sex: Female

DRUGS (1)
  1. JUXTAPID (LOMITAPIDE) CAPSULE, 5MG [Suspect]
     Indication: PRODUCT USED FOR UNKNOWN INDICATION
     Route: 048
     Dates: start: 20130915, end: 2013

REACTIONS (2)
  - Product used for unknown indication [None]
  - Diarrhoea [None]
